FAERS Safety Report 7761734-4 (Version None)
Quarter: 2011Q3

REPORT INFORMATION
  Report Type: 
  Country: None (occurrence: None)
  Receive Date: 20110920
  Receipt Date: 20110912
  Transmission Date: 20111222
  Serious: Yes (Hospitalization)
  Sender: FDA-Public Use
  Company Number: PHHO2008DE03853

PATIENT
  Sex: Male

DRUGS (3)
  1. PREDNISOLONE [Concomitant]
     Indication: RENAL TRANSPLANT
  2. EVEROLIMUS [Suspect]
     Indication: RENAL TRANSPLANT
     Dosage: 1.5 MG, UNK
     Route: 048
     Dates: start: 20080312, end: 20080322
  3. MYCOPHENOLATE MOFETIL [Concomitant]
     Indication: RENAL TRANSPLANT

REACTIONS (7)
  - PYREXIA [None]
  - PNEUMONIA [None]
  - RESPIRATORY FAILURE [None]
  - PULMONARY OEDEMA [None]
  - DYSPNOEA [None]
  - CHILLS [None]
  - ATRIAL FIBRILLATION [None]
